FAERS Safety Report 5451969-8 (Version None)
Quarter: 2007Q3

REPORT INFORMATION
  Report Type: 
  Country: None (occurrence: None)
  Receive Date: 20070912
  Receipt Date: 20070831
  Transmission Date: 20080115
  Serious: Yes (Life-Threatening, Hospitalization)
  Sender: FDA-Public Use
  Company Number: GXKR2007IL07591

PATIENT
  Age: 25 Year
  Sex: Male
  Weight: 60 kg

DRUGS (4)
  1. CARBAMAZEPINE [Suspect]
     Indication: INTENTIONAL OVERDOSE
     Dosage: 20 G, ORAL
     Route: 048
  2. PAROXETINE [Suspect]
     Indication: BORDERLINE PERSONALITY DISORDER
     Dosage: 400 MG, ORAL
     Route: 048
  3. LITHIUM CARBONATE [Concomitant]
  4. RISPERIDONE [Concomitant]

REACTIONS (20)
  - ALANINE AMINOTRANSFERASE INCREASED [None]
  - BLOOD CREATINE PHOSPHOKINASE INCREASED [None]
  - COMA [None]
  - DRUG INEFFECTIVE [None]
  - GAMMA-GLUTAMYLTRANSFERASE INCREASED [None]
  - HEART RATE INCREASED [None]
  - HEPATIC ENZYME ABNORMAL [None]
  - HYPERNATRAEMIA [None]
  - HYPOTENSION [None]
  - LEUKOCYTOSIS [None]
  - LOSS OF CONSCIOUSNESS [None]
  - MULTIPLE DRUG OVERDOSE INTENTIONAL [None]
  - MYDRIASIS [None]
  - PNEUMONIA ASPIRATION [None]
  - SEPSIS [None]
  - SOMNOLENCE [None]
  - SUICIDE ATTEMPT [None]
  - THROMBOCYTOPENIA [None]
  - TONIC CONVULSION [None]
  - VOMITING [None]
